FAERS Safety Report 19245814 (Version 5)
Quarter: 2024Q4

REPORT INFORMATION
  Report Type: Spontaneous
  Country: IT (occurrence: IT)
  Receive Date: 20210512
  Receipt Date: 20241029
  Transmission Date: 20250115
  Serious: Yes (Death, Hospitalization, Other)
  Sender: AUROBINDO
  Company Number: IT-MLMSERVICE-20210429-2859662-1

PATIENT
  Age: 54 Year
  Sex: Male

DRUGS (6)
  1. CARBOPLATIN [Suspect]
     Active Substance: CARBOPLATIN
     Indication: Lung adenocarcinoma
     Dosage: UNK UNK, 2 CYCLICAL (DOSE: AUC5; EVERY 21 DAYS )
     Route: 065
     Dates: start: 20200601
  2. CARBOPLATIN [Suspect]
     Active Substance: CARBOPLATIN
     Indication: Non-small cell lung cancer metastatic
  3. PEMETREXED [Suspect]
     Active Substance: PEMETREXED
     Indication: Lung adenocarcinoma
     Dosage: 500 MILLIGRAM/SQ. METER, 2 CYCLICAL
     Route: 065
     Dates: start: 20200601
  4. PEMETREXED [Suspect]
     Active Substance: PEMETREXED
     Indication: Non-small cell lung cancer metastatic
     Dosage: 500 MILLIGRAM, CYCLICAL (EVERY 21 DAYS)
     Route: 065
  5. PEMBROLIZUMAB [Suspect]
     Active Substance: PEMBROLIZUMAB
     Indication: Lung adenocarcinoma
     Dosage: 200 MILLIGRAM/SQ. METER, 1 CYCLICAL
     Route: 065
     Dates: start: 202006
  6. PEMBROLIZUMAB [Suspect]
     Active Substance: PEMBROLIZUMAB
     Indication: Non-small cell lung cancer metastatic
     Dosage: 200 MILLIGRAM, 21 DAYS
     Route: 065

REACTIONS (8)
  - Sudden death [Fatal]
  - Acute myocardial infarction [Recovering/Resolving]
  - Atrial fibrillation [Recovering/Resolving]
  - Pericarditis [Recovering/Resolving]
  - Pericarditis malignant [Unknown]
  - Dyspnoea [Unknown]
  - Pericardial effusion [Recovering/Resolving]
  - Paraneoplastic syndrome [Recovering/Resolving]

NARRATIVE: CASE EVENT DATE: 20200601
